FAERS Safety Report 25623348 (Version 2)
Quarter: 2025Q3

REPORT INFORMATION
  Report Type: Spontaneous
  Country: EU (occurrence: EU)
  Receive Date: 20250730
  Receipt Date: 20250903
  Transmission Date: 20251021
  Serious: Yes (Other)
  Sender: MYLAN
  Company Number: EU-ASTELLAS-2025-AER-037332

PATIENT
  Age: 11 Year
  Sex: Male

DRUGS (16)
  1. TACROLIMUS [Suspect]
     Active Substance: TACROLIMUS
     Indication: Renal transplant
     Dosage: 0.1 MILLIGRAM/KILOGRAM, BID
     Dates: start: 20140923, end: 20240718
  2. TACROLIMUS [Suspect]
     Active Substance: TACROLIMUS
     Dosage: 0.1 MILLIGRAM/KILOGRAM, BID
     Route: 048
     Dates: start: 20140923, end: 20240718
  3. TACROLIMUS [Suspect]
     Active Substance: TACROLIMUS
     Dosage: 0.1 MILLIGRAM/KILOGRAM, BID
     Route: 048
     Dates: start: 20140923, end: 20240718
  4. TACROLIMUS [Suspect]
     Active Substance: TACROLIMUS
     Dosage: 0.1 MILLIGRAM/KILOGRAM, BID
     Dates: start: 20140923, end: 20240718
  5. PREDNISOLONE [Suspect]
     Active Substance: PREDNISOLONE
     Indication: Renal transplant
  6. PREDNISOLONE [Suspect]
     Active Substance: PREDNISOLONE
     Route: 065
  7. PREDNISOLONE [Suspect]
     Active Substance: PREDNISOLONE
     Route: 065
  8. PREDNISOLONE [Suspect]
     Active Substance: PREDNISOLONE
  9. IRON [Concomitant]
     Active Substance: IRON
     Indication: Product used for unknown indication
     Dosage: UNK UNK, MONTHLY
  10. IRON [Concomitant]
     Active Substance: IRON
     Dosage: UNK UNK, MONTHLY
     Route: 065
  11. IRON [Concomitant]
     Active Substance: IRON
     Dosage: UNK UNK, MONTHLY
     Route: 065
  12. IRON [Concomitant]
     Active Substance: IRON
     Dosage: UNK UNK, MONTHLY
  13. DARBEPOETIN ALFA [Concomitant]
     Active Substance: DARBEPOETIN ALFA
     Indication: Chronic kidney disease
  14. DARBEPOETIN ALFA [Concomitant]
     Active Substance: DARBEPOETIN ALFA
     Route: 065
  15. DARBEPOETIN ALFA [Concomitant]
     Active Substance: DARBEPOETIN ALFA
     Route: 065
  16. DARBEPOETIN ALFA [Concomitant]
     Active Substance: DARBEPOETIN ALFA

REACTIONS (5)
  - Epstein-Barr virus infection [Not Recovered/Not Resolved]
  - Polyomavirus test positive [Not Recovered/Not Resolved]
  - Post transplant lymphoproliferative disorder [Recovering/Resolving]
  - Skin papilloma [Not Recovered/Not Resolved]
  - Molluscum contagiosum [Not Recovered/Not Resolved]

NARRATIVE: CASE EVENT DATE: 20240601
